FAERS Safety Report 16946977 (Version 5)
Quarter: 2020Q1

REPORT INFORMATION
  Report Type: Spontaneous
  Country: CA (occurrence: CA)
  Receive Date: 20191022
  Receipt Date: 20200224
  Transmission Date: 20200409
  Serious: Yes (Life-Threatening, Other)
  Sender: FDA-Public Use
  Company Number: CA-GLAXOSMITHKLINE-CA2019AMR190534

PATIENT
  Sex: Female
  Weight: 111.5 kg

DRUGS (8)
  1. BENLYSTA [Suspect]
     Active Substance: BELIMUMAB
     Dosage: UNK
  2. PLAQUENIL [Suspect]
     Active Substance: HYDROXYCHLOROQUINE SULFATE
     Indication: PRODUCT USED FOR UNKNOWN INDICATION
     Dosage: 400 MG, QD
     Dates: start: 20191113
  3. BENLYSTA [Suspect]
     Active Substance: BELIMUMAB
     Dosage: UNK
  4. IMURAN [Suspect]
     Active Substance: AZATHIOPRINE
     Indication: PRODUCT USED FOR UNKNOWN INDICATION
     Dosage: 200 MG, QD
     Route: 048
  5. BENLYSTA [Suspect]
     Active Substance: BELIMUMAB
     Indication: SYSTEMIC LUPUS ERYTHEMATOSUS
     Dosage: 1000 MG, UNK
     Route: 042
     Dates: start: 20190307
  6. BENLYSTA [Suspect]
     Active Substance: BELIMUMAB
     Dosage: UNK
  7. BENLYSTA [Suspect]
     Active Substance: BELIMUMAB
     Dosage: 200 MG
  8. PREDNISONE. [Suspect]
     Active Substance: PREDNISONE
     Indication: PRODUCT USED FOR UNKNOWN INDICATION
     Dosage: 20 MG, QD

REACTIONS (3)
  - Suicidal ideation [Unknown]
  - Fatigue [Unknown]
  - Adverse drug reaction [Unknown]
